FAERS Safety Report 12465045 (Version 1)
Quarter: 2016Q2

REPORT INFORMATION
  Report Type: Spontaneous
  Country: JP (occurrence: JP)
  Receive Date: 20160614
  Receipt Date: 20160614
  Transmission Date: 20160815
  Serious: Yes (Death, Other)
  Sender: FDA-Public Use
  Company Number: PHJP1900JP002707

PATIENT
  Age: 20 Year
  Sex: Male

DRUGS (5)
  1. SANDIMMUN [Suspect]
     Active Substance: CYCLOSPORINE
     Indication: APLASTIC ANAEMIA
     Dosage: 580 MG, UNK
     Route: 048
     Dates: start: 19911202, end: 19940407
  2. EPOGIN [Concomitant]
     Active Substance: ERYTHROPOIETIN
     Indication: APLASTIC ANAEMIA
     Dosage: 1.2 MG, UNK
     Route: 065
     Dates: start: 19911112, end: 19940407
  3. INTERLEUKIN-6 [Concomitant]
     Indication: APLASTIC ANAEMIA
     Route: 065
     Dates: start: 19931004, end: 19931009
  4. NEUTROGIN [Suspect]
     Active Substance: LENOGRASTIM
     Indication: APLASTIC ANAEMIA
     Dosage: 250 MG, UNK
     Route: 065
     Dates: start: 19911112
  5. ANTITHYMOCYTE IMMUNOGLOBULIN [Suspect]
     Active Substance: THYMOCYTE IMMUNE GLOBULIN NOS
     Indication: APLASTIC ANAEMIA
     Route: 065
     Dates: start: 19930802, end: 19930809

REACTIONS (1)
  - Acute leukaemia [Fatal]
